FAERS Safety Report 9674472 (Version 1)
Quarter: 2013Q4

REPORT INFORMATION
  Report Type: Spontaneous
  Country: US (occurrence: US)
  Receive Date: 20131107
  Receipt Date: 20131107
  Transmission Date: 20140711
  Serious: No
  Sender: FDA-Public Use
  Company Number: US-009507513-1310USA012919

PATIENT
  Sex: 0

DRUGS (4)
  1. ELAVIL (MADE BY MERCK, MARKETED BY ZENECA) [Suspect]
     Dosage: UNK
  2. LYRICA [Concomitant]
     Dosage: 75 MG, BID
  3. XANAX [Concomitant]
     Dosage: 1 MG, PRN
  4. CELEXA [Concomitant]
     Dosage: 40 MG, QD

REACTIONS (1)
  - Pain [Unknown]
